FAERS Safety Report 9527159 (Version 3)
Quarter: 2013Q4

REPORT INFORMATION
  Report Type: Spontaneous
  Country: CH (occurrence: CH)
  Receive Date: 20130916
  Receipt Date: 20131009
  Transmission Date: 20140711
  Serious: Yes (Hospitalization, Other)
  Sender: FDA-Public Use
  Company Number: CH-ABBVIE-13P-151-1145125-00

PATIENT
  Sex: Female

DRUGS (1)
  1. HUMIRA [Suspect]
     Indication: SPONDYLOARTHROPATHY

REACTIONS (3)
  - Angina unstable [Unknown]
  - Angina pectoris [Recovering/Resolving]
  - Hypercholesterolaemia [Not Recovered/Not Resolved]
